FAERS Safety Report 7496454-7 (Version None)
Quarter: 2011Q2

REPORT INFORMATION
  Report Type: 
  Country: None (occurrence: None)
  Receive Date: 20110523
  Receipt Date: 20110519
  Transmission Date: 20111010
  Serious: Yes (Life-Threatening, Hospitalization, Other)
  Sender: FDA-Public Use
  Company Number: CU-ASTRAZENECA-2011SE30267

PATIENT
  Age: 49 Year
  Sex: Male

DRUGS (4)
  1. LEVOMEPROMAZINE [Suspect]
     Dosage: 20 TABLETS OF 25MG
     Route: 065
  2. SEROQUEL [Suspect]
     Dosage: 20 TABLETS OF SEROQUEL 200MG
     Route: 048
  3. SEROQUEL [Suspect]
     Route: 048
  4. GLYBURIDE [Suspect]
     Dosage: 20 TABLETS OF 5MG
     Route: 065

REACTIONS (2)
  - OVERDOSE [None]
  - SUICIDE ATTEMPT [None]
